FAERS Safety Report 24397722 (Version 1)
Quarter: 2024Q4

REPORT INFORMATION
  Report Type: Spontaneous
  Country: US (occurrence: US)
  Receive Date: 20241004
  Receipt Date: 20241004
  Transmission Date: 20250115
  Serious: Yes (Other)
  Sender: BAXTER
  Company Number: US-BAXTER-2024BAX025244

PATIENT
  Sex: Female

DRUGS (1)
  1. DOXIL [Suspect]
     Active Substance: DOXORUBICIN HYDROCHLORIDE
     Dosage: 96 MG IN 250 ML D5W
     Route: 065

REACTIONS (3)
  - Ascites [Unknown]
  - Abdominal distension [Unknown]
  - Incorrect dose administered [Unknown]
